FAERS Safety Report 6524576-3 (Version None)
Quarter: 2010Q1

REPORT INFORMATION
  Report Type: 
  Country: None (occurrence: None)
  Receive Date: 20100104
  Receipt Date: 20091221
  Transmission Date: 20100710
  Serious: Yes (Other)
  Sender: FDA-Public Use
  Company Number: PHEH2009US16448

PATIENT
  Sex: Female

DRUGS (2)
  1. EXJADE [Suspect]
     Dosage: 1500 DAILY
     Route: 048
     Dates: start: 20071115, end: 20090904
  2. EXJADE [Suspect]
     Dosage: UNK

REACTIONS (3)
  - ABDOMINAL PAIN [None]
  - CHOLECYSTECTOMY [None]
  - DIARRHOEA [None]
